FAERS Safety Report 14675859 (Version 2)
Quarter: 2018Q3

REPORT INFORMATION
  Report Type: Spontaneous
  Country: US (occurrence: US)
  Receive Date: 20180323
  Receipt Date: 20180814
  Transmission Date: 20181010
  Serious: Yes (Hospitalization, Other)
  Sender: FDA-Public Use
  Company Number: US-DRREDDYS-USA/USA/18/0096972

PATIENT
  Age: 53 Year
  Sex: Female

DRUGS (1)
  1. MELOXICAM. [Suspect]
     Active Substance: MELOXICAM
     Indication: BACK PAIN
     Route: 065

REACTIONS (3)
  - Ischaemic gastritis [Unknown]
  - Gastric mucosal hypertrophy [Unknown]
  - Gastric ulcer [Unknown]
